FAERS Safety Report 9537884 (Version 3)
Quarter: 2013Q4

REPORT INFORMATION
  Report Type: Spontaneous
  Country: US (occurrence: US)
  Receive Date: 20130919
  Receipt Date: 20131025
  Transmission Date: 20140711
  Serious: Yes (Other)
  Sender: FDA-Public Use
  Company Number: US-TARO-2013P1019079

PATIENT
  Age: 3 Year
  Sex: Male
  Weight: 14.97 kg

DRUGS (4)
  1. DESOXIMETASONE CREAM USP 0.05% [Suspect]
     Route: 048
     Dates: start: 20130830, end: 20130830
  2. PROBIOTIC [Concomitant]
  3. FISH OIL [Concomitant]
  4. MULTIVITAMIN [Concomitant]

REACTIONS (6)
  - Accidental exposure to product [Recovered/Resolved]
  - Croup infectious [Recovered/Resolved]
  - Cough [Recovering/Resolving]
  - Food allergy [Unknown]
  - Respiratory distress [Recovered/Resolved]
  - Anxiety [Recovered/Resolved]
